FAERS Safety Report 22537631 (Version 1)
Quarter: 2023Q2

REPORT INFORMATION
  Report Type: Spontaneous
  Country: NL (occurrence: NL)
  Receive Date: 20230608
  Receipt Date: 20230608
  Transmission Date: 20230721
  Serious: Yes (Other)
  Sender: FDA-Public Use
  Company Number: NL-TEVA-2023-NL-2894194

PATIENT
  Age: 37 Year
  Sex: Female

DRUGS (20)
  1. FLUDARABINE [Suspect]
     Active Substance: FLUDARABINE PHOSPHATE
     Indication: Acute myeloid leukaemia refractory
     Dosage: RECEIVED FLAMSA-RIC REGIMEN
     Route: 065
  2. ACYCLOVIR [Suspect]
     Active Substance: ACYCLOVIR
     Indication: Herpes simplex
     Dosage: 30 MG/KG DAILY; RECEIVED THREE TIMES DAILY.
     Route: 042
  3. ACYCLOVIR [Suspect]
     Active Substance: ACYCLOVIR
     Indication: Stomatitis
  4. VALACYCLOVIR HYDROCHLORIDE [Suspect]
     Active Substance: VALACYCLOVIR HYDROCHLORIDE
     Indication: Herpes simplex
     Dosage: 1000 MILLIGRAM DAILY;
     Route: 065
  5. VALACYCLOVIR HYDROCHLORIDE [Suspect]
     Active Substance: VALACYCLOVIR HYDROCHLORIDE
     Indication: Stomatitis
  6. MYCOPHENOLATE MOFETIL [Suspect]
     Active Substance: MYCOPHENOLATE MOFETIL
     Indication: Acute myeloid leukaemia refractory
     Route: 065
  7. AMSACRINE [Suspect]
     Active Substance: AMSACRINE
     Indication: Acute myeloid leukaemia refractory
     Dosage: RECEIVED FLAMSA-RIC REGIMEN
     Route: 065
  8. CYTARABINE [Suspect]
     Active Substance: CYTARABINE
     Indication: Acute myeloid leukaemia refractory
     Dosage: RECEIVED FLAMSA-RIC REGIMEN
     Route: 065
  9. CYCLOPHOSPHAMIDE [Suspect]
     Active Substance: CYCLOPHOSPHAMIDE
     Indication: Acute myeloid leukaemia refractory
     Dosage: RECEIVED FLAMSA-RIC REGIMEN; HIGH DOSE
     Route: 065
  10. THYMOCYTE IMMUNE GLOBULIN NOS [Suspect]
     Active Substance: THYMOCYTE IMMUNE GLOBULIN NOS
     Indication: Acute myeloid leukaemia refractory
     Dosage: RECEIVED FLAMSA-RIC REGIMEN
     Route: 065
  11. SIROLIMUS [Suspect]
     Active Substance: SIROLIMUS
     Indication: Acute myeloid leukaemia refractory
     Route: 065
  12. PREDNISOLONE [Suspect]
     Active Substance: PREDNISOLONE
     Indication: Acute graft versus host disease in intestine
     Route: 042
  13. RUXOLITINIB [Suspect]
     Active Substance: RUXOLITINIB
     Indication: Acute graft versus host disease in intestine
     Route: 065
  14. VEDOLIZUMAB [Suspect]
     Active Substance: VEDOLIZUMAB
     Indication: Acute graft versus host disease in intestine
     Route: 065
  15. FOSCARNET [Suspect]
     Active Substance: FOSCARNET
     Indication: Herpes simplex
     Dosage: 120 MG/KG DAILY;
     Route: 065
  16. FOSCARNET [Suspect]
     Active Substance: FOSCARNET
     Indication: Stomatitis
     Dosage: 120 MG/KG DAILY; RECEIVED THREE TIMES DAILY
     Route: 065
  17. CIDOFOVIR [Suspect]
     Active Substance: CIDOFOVIR
     Indication: Herpes simplex
     Dosage: RECEIVED TWO DOSES; AT 5 MG/KG WEEKLY FOR 2 WEEKS FOLLOWED BY ONCE EVERY 2 WEEKS.
     Route: 042
  18. CIDOFOVIR [Suspect]
     Active Substance: CIDOFOVIR
     Indication: Stomatitis
  19. PRITELIVIR [Concomitant]
     Active Substance: PRITELIVIR
     Indication: Herpes simplex
     Route: 065
  20. PRITELIVIR [Concomitant]
     Active Substance: PRITELIVIR
     Indication: Stomatitis

REACTIONS (5)
  - Herpes simplex [Recovering/Resolving]
  - Stomatitis [Recovering/Resolving]
  - Nephropathy toxic [Recovering/Resolving]
  - Drug ineffective [Unknown]
  - Drug resistance [Unknown]
